FAERS Safety Report 20645715 (Version 1)
Quarter: 2022Q1

REPORT INFORMATION
  Report Type: Report from Study
  Country: JP (occurrence: JP)
  Receive Date: 20220328
  Receipt Date: 20220328
  Transmission Date: 20220423
  Serious: Yes (Death)
  Sender: FDA-Public Use
  Company Number: JP-BAYER-2022A043723

PATIENT
  Age: 40 Year
  Sex: Female

DRUGS (5)
  1. VENTAVIS [Suspect]
     Active Substance: ILOPROST
     Indication: Pulmonary arterial hypertension
     Dosage: 5 U, QID
     Route: 055
     Dates: start: 20180523
  2. VENTAVIS [Suspect]
     Active Substance: ILOPROST
     Indication: Pulmonary arterial hypertension
     Dosage: 5 U, TID
     Route: 055
     Dates: end: 20180928
  3. MACITENTAN [Concomitant]
     Active Substance: MACITENTAN
  4. TADALAFIL [Concomitant]
     Active Substance: TADALAFIL
  5. CAMEDON [Concomitant]

REACTIONS (1)
  - Death [Fatal]
